FAERS Safety Report 7197232-9 (Version None)
Quarter: 2010Q4

REPORT INFORMATION
  Report Type: 
  Country: None (occurrence: None)
  Receive Date: 20101224
  Receipt Date: 20101220
  Transmission Date: 20110411
  Serious: Yes (Death, Hospitalization)
  Sender: FDA-Public Use
  Company Number: MX-BRISTOL-MYERS SQUIBB COMPANY-15454523

PATIENT
  Age: 48 Year
  Sex: Male

DRUGS (2)
  1. IRBESARTAN [Suspect]
     Indication: HYPERTENSION
     Route: 048
     Dates: start: 20070101, end: 20100101
  2. LANTUS [Suspect]
     Indication: TYPE 2 DIABETES MELLITUS
     Dosage: 1DF: 100IU/ML
     Route: 058
     Dates: start: 20050101, end: 20100101

REACTIONS (2)
  - ACUTE MYOCARDIAL INFARCTION [None]
  - FEMUR FRACTURE [None]
